FAERS Safety Report 10131592 (Version 1)
Quarter: 2014Q2

REPORT INFORMATION
  Report Type: Spontaneous
  Country: US (occurrence: US)
  Receive Date: 20140428
  Receipt Date: 20140428
  Transmission Date: 20141212
  Serious: Yes (Other)
  Sender: FDA-Public Use
  Company Number: US-SHIRE-US201401459

PATIENT
  Age: 35 Year
  Sex: Male

DRUGS (7)
  1. VYVANSE [Suspect]
     Indication: ATTENTION DEFICIT/HYPERACTIVITY DISORDER
     Dosage: 70 MG, 1X/DAY:QD
     Route: 048
     Dates: start: 2013
  2. VYVANSE [Suspect]
     Indication: NARCOLEPSY
  3. VIIBRYD [Concomitant]
     Indication: DEPRESSION
     Dosage: 40 MG, 1X/DAY:QD
     Route: 065
  4. VIIBRYD [Concomitant]
     Indication: BIPOLAR DISORDER
  5. LISINOPRIL [Concomitant]
     Indication: BLOOD PRESSURE ABNORMAL
     Dosage: 40 MG, 1X/DAY:QD
     Route: 065
  6. ALBUTEROL                          /00139501/ [Concomitant]
     Indication: ASTHMA
     Dosage: UNK (INHALER), AS REQ^D
     Route: 055
  7. ALBUTEROL                          /00139501/ [Concomitant]
     Dosage: UNK, AS REQ^D (BREATHING TREATMENT)
     Route: 055

REACTIONS (7)
  - Drug withdrawal syndrome [Not Recovered/Not Resolved]
  - Disturbance in attention [Not Recovered/Not Resolved]
  - Lethargy [Recovered/Resolved]
  - Sluggishness [Not Recovered/Not Resolved]
  - Somnolence [Not Recovered/Not Resolved]
  - Nausea [Not Recovered/Not Resolved]
  - Drug dose omission [Not Recovered/Not Resolved]
